FAERS Safety Report 23328769 (Version 1)
Quarter: 2023Q4

REPORT INFORMATION
  Report Type: Report from Study
  Country: US (occurrence: US)
  Receive Date: 20231221
  Receipt Date: 20231221
  Transmission Date: 20240110
  Serious: Yes (Other)
  Sender: FDA-Public Use
  Company Number: US-ABBVIE-5551989

PATIENT
  Sex: Male

DRUGS (2)
  1. SKYRIZI [Suspect]
     Active Substance: RISANKIZUMAB-RZAA
     Indication: Psoriasis
     Dosage: FORM STRENGTH 150 MILLIGRAMS?WEEK 0?ONE IN ONCE
     Route: 058
     Dates: start: 20231111, end: 20231111
  2. SKYRIZI [Suspect]
     Active Substance: RISANKIZUMAB-RZAA
     Dosage: FORM STRENGTH 150 MILLIGRAMS?WEEK 4?ONE IN ONCE
     Route: 058
     Dates: start: 20231209, end: 20231209

REACTIONS (7)
  - Skin cancer [Unknown]
  - Fatigue [Unknown]
  - Feeling hot [Unknown]
  - Asthenia [Unknown]
  - Hyperhidrosis [Unknown]
  - Chills [Unknown]
  - Somnolence [Recovering/Resolving]

NARRATIVE: CASE EVENT DATE: 20230101
